FAERS Safety Report 18084798 (Version 4)
Quarter: 2021Q1

REPORT INFORMATION
  Report Type: Spontaneous
  Country: US (occurrence: US)
  Receive Date: 20200729
  Receipt Date: 20210331
  Transmission Date: 20210419
  Serious: No
  Sender: FDA-Public Use
  Company Number: US-ELI_LILLY_AND_COMPANY-US202007011918

PATIENT
  Sex: Female

DRUGS (4)
  1. OLUMIANT [Suspect]
     Active Substance: BARICITINIB
     Indication: RHEUMATOID ARTHRITIS
     Dosage: 2 MG, DAILY
     Route: 048
     Dates: start: 202005
  2. OLUMIANT [Suspect]
     Active Substance: BARICITINIB
     Dosage: 2 UNK
     Route: 048
  3. OLUMIANT [Suspect]
     Active Substance: BARICITINIB
     Dosage: 2 MG, DAILY
     Route: 048
     Dates: start: 202005
  4. OLUMIANT [Suspect]
     Active Substance: BARICITINIB
     Dosage: 2 MG, UNKNOWN
     Route: 048

REACTIONS (13)
  - Fatigue [Unknown]
  - Memory impairment [Unknown]
  - Neutropenia [Unknown]
  - Blood iron decreased [Unknown]
  - Red blood cell count decreased [Recovering/Resolving]
  - Rheumatoid arthritis [Not Recovered/Not Resolved]
  - Arthralgia [Unknown]
  - Anaemia [Unknown]
  - Thalassaemia beta [Unknown]
  - Platelet count abnormal [Unknown]
  - Myalgia [Unknown]
  - Drug ineffective [Unknown]
  - Low density lipoprotein increased [Unknown]
